FAERS Safety Report 10796673 (Version 1)
Quarter: 2015Q1

REPORT INFORMATION
  Report Type: Spontaneous
  Country: AU (occurrence: AU)
  Receive Date: 20150216
  Receipt Date: 20150216
  Transmission Date: 20150721
  Serious: Yes (Hospitalization)
  Sender: FDA-Public Use
  Company Number: AU-MYLANLABS-2015M1004553

PATIENT

DRUGS (2)
  1. ZYPREXA [Concomitant]
     Active Substance: OLANZAPINE
     Indication: PRODUCT USED FOR UNKNOWN INDICATION
     Dosage: UNK
  2. DERALIN 10 [Suspect]
     Active Substance: PROPRANOLOL HYDROCHLORIDE
     Indication: RESTLESS LEGS SYNDROME
     Dosage: 2 DF, HS
     Dates: start: 20150205

REACTIONS (5)
  - Tremor [Recovered/Resolved]
  - Joint swelling [Recovered/Resolved]
  - Loss of consciousness [Recovered/Resolved]
  - Peripheral swelling [Recovered/Resolved]
  - Erythema [Recovered/Resolved]

NARRATIVE: CASE EVENT DATE: 20150205
